FAERS Safety Report 8711215 (Version 2)
Quarter: 2012Q4

REPORT INFORMATION
  Report Type: Spontaneous
  Country: CH (occurrence: None)
  Receive Date: 20120720
  Receipt Date: 20120906
  Transmission Date: 20130627
  Serious: Yes (Hospitalization)
  Sender: FDA-Public Use
  Company Number: 2012CP000081

PATIENT
  Age: 65 Year
  Sex: Female

DRUGS (7)
  1. ACETAMINOPHEN [Suspect]
     Route: 042
     Dates: start: 2012, end: 20120525
  2. ROCEPHIN [Suspect]
     Route: 042
     Dates: start: 20120426, end: 20120521
  3. METRONIDAZOLE [Suspect]
     Route: 048
     Dates: start: 20120426, end: 20120521
  4. KEPPRA [Suspect]
     Route: 048
     Dates: start: 20120426, end: 20120527
  5. PANTOPRAZOLE [Suspect]
     Route: 048
     Dates: start: 201204, end: 20120525
  6. CLAMOXYL [Suspect]
     Dosage: 6/1 DAY
     Route: 042
     Dates: start: 20120727, end: 20120730
  7. KONAKION [Concomitant]

REACTIONS (9)
  - Drug reaction with eosinophilia and systemic symptoms [None]
  - Oedema peripheral [None]
  - Brain abscess [None]
  - Brain oedema [None]
  - Prothrombin time prolonged [None]
  - Streptococcus test positive [None]
  - Epilepsy [None]
  - Infusion site pruritus [None]
  - Infusion site rash [None]
